FAERS Safety Report 4958170-2 (Version None)
Quarter: 2006Q1

REPORT INFORMATION
  Report Type: 
  Country: None (occurrence: None)
  Receive Date: 20060330
  Receipt Date: 20030530
  Transmission Date: 20060701
  Serious: Yes (Death, Hospitalization, Other)
  Sender: FDA-Public Use
  Company Number: 2003UW06922

PATIENT
  Age: 31 Year
  Sex: Male
  Weight: 83.2 kg

DRUGS (64)
  1. PROPOFOL [Suspect]
     Indication: SEDATION
     Dosage: 25 TO 60 ML/HR
     Route: 042
     Dates: start: 20010518
  2. PROPOFOL [Suspect]
     Dosage: 80 ML/HR (1000MG/100ML)
     Route: 042
     Dates: start: 20010519, end: 20010521
  3. PROPOFOL [Suspect]
     Dosage: 110 ML/HR
     Route: 042
     Dates: start: 20010522
  4. PROPOFOL [Suspect]
     Dosage: 40 ML/HR
     Route: 042
  5. PROPOFOL [Suspect]
     Route: 042
  6. SUCCINYLCHOLINE [Suspect]
  7. WELLBUTRIN SR [Concomitant]
     Route: 048
  8. ADALAT CC [Concomitant]
     Route: 048
     Dates: start: 20010517
  9. PROCARDIA XL [Concomitant]
  10. ANCEF [Concomitant]
     Dates: start: 20010516
  11. COLACE [Concomitant]
     Route: 048
     Dates: start: 20010516
  12. HEPARIN [Concomitant]
     Route: 058
     Dates: start: 20010516
  13. LASIX [Concomitant]
     Route: 048
     Dates: start: 20010515, end: 20010516
  14. LASIX [Concomitant]
     Route: 048
     Dates: start: 20010517
  15. LASIX [Concomitant]
     Route: 042
  16. LASIX [Concomitant]
     Route: 042
  17. POTASSIUM CHLORIDE [Concomitant]
     Route: 048
     Dates: start: 20010517
  18. POTASSIUM CHLORIDE [Concomitant]
     Route: 042
  19. POTASSIUM CHLORIDE [Concomitant]
  20. POTASSIUM CHLORIDE [Concomitant]
  21. ZOSYN [Concomitant]
     Route: 042
     Dates: start: 20010517
  22. SODIUM CHLORIDE [Concomitant]
     Route: 042
     Dates: start: 20010517
  23. MULTI-VITAMIN [Concomitant]
     Dates: start: 20010519
  24. REGLAN [Concomitant]
     Route: 042
     Dates: start: 20010522
  25. SODIUM BICARBONATE [Concomitant]
     Dates: start: 20010523
  26. MORPHINE [Concomitant]
     Dates: start: 20010516
  27. TYLENOL (CAPLET) [Concomitant]
     Dates: start: 20010522
  28. TYLENOL (CAPLET) [Concomitant]
     Route: 048
  29. VERSED [Concomitant]
     Route: 042
     Dates: start: 20010516
  30. VERSED [Concomitant]
     Dates: start: 20010518
  31. LIDOCAINE [Concomitant]
  32. ADENOSINE [Concomitant]
     Dates: start: 20010522
  33. ADENOSINE [Concomitant]
     Dates: start: 20010522
  34. DULCOLAX [Concomitant]
     Dates: start: 20010522
  35. ATIVAN [Concomitant]
     Route: 042
     Dates: start: 20010522
  36. TORADOL [Concomitant]
     Dosage: 15 MG Q6H PRN
     Route: 042
     Dates: start: 20010516
  37. TORADOL [Concomitant]
     Route: 042
     Dates: start: 20010517
  38. DARVOCET [Concomitant]
     Indication: PAIN
     Dosage: 1-2 Q4H PRN
     Route: 048
     Dates: start: 20010517
  39. AMBIEN [Concomitant]
     Indication: SLEEP DISORDER
     Route: 048
     Dates: start: 20010516
  40. AMBIEN [Concomitant]
     Route: 048
     Dates: start: 20010517
  41. DEMEROL [Concomitant]
  42. BUPIVACAINE HCL AND EPINEPHRINE [Concomitant]
  43. XANAX [Concomitant]
     Route: 048
     Dates: start: 20010517
  44. BENADRYL [Concomitant]
     Indication: SLEEP DISORDER
  45. BENADRYL [Concomitant]
     Dosage: 25-50 MG QHS PRN
  46. SENSORCAINE W/EPINEPHRINE [Concomitant]
     Dates: start: 20010516
  47. ALBUTEROL [Concomitant]
     Dosage: 0.5 ML/2.5 ML
  48. ALBUTEROL [Concomitant]
     Dosage: 0.5 ML/2.5 ML
  49. FENTANYL [Concomitant]
     Dates: start: 20010516
  50. LORCET-HD [Concomitant]
  51. MARCAINE HCL W/ EPINEPHRINE [Concomitant]
     Dates: start: 20010516
  52. BUPIVACAINE [Concomitant]
     Dosage: 10 MCG/ML
  53. DILAUDID [Concomitant]
     Dosage: 10 MCG/ML
  54. LEVAQUIN [Concomitant]
     Route: 048
     Dates: start: 20010517
  55. MUCOMYST [Concomitant]
     Dates: start: 20010517
  56. MANNITOL [Concomitant]
     Dosage: 150 ML/HR
     Dates: start: 20010522
  57. VANCOMYCIN [Concomitant]
     Dates: start: 20010522
  58. DOPAMINE [Concomitant]
     Dates: start: 20010522
  59. EPINEPHRINE [Concomitant]
     Dosage: 2 MG/250 CC D5W
     Dates: start: 20010522
  60. CALCIUM HYDROCHLORIDE [Concomitant]
  61. ZEMURON [Concomitant]
     Dates: start: 20010516
  62. SEVOFLURANE [Concomitant]
     Dates: start: 20010516
  63. LEVOPHED [Concomitant]
     Dosage: 10 MCG/ML
     Dates: start: 20010522
  64. OSMOLITE [Concomitant]
     Route: 042
     Dates: start: 20040521

REACTIONS (33)
  - ATRIAL FIBRILLATION [None]
  - ATRIOVENTRICULAR BLOCK COMPLETE [None]
  - BLOOD TRIGLYCERIDES INCREASED [None]
  - BRADYCARDIA [None]
  - CARDIAC ARREST [None]
  - CARDIOGENIC SHOCK [None]
  - CARDIOMEGALY [None]
  - DRUG ADMINISTRATION ERROR [None]
  - ELECTROCARDIOGRAM QT PROLONGED [None]
  - HEPATIC STEATOSIS [None]
  - HEPATITIS [None]
  - HEPATOCELLULAR DAMAGE [None]
  - HEPATOMEGALY [None]
  - HYPERKALAEMIA [None]
  - HYPERLIPIDAEMIA [None]
  - HYPERTENSION [None]
  - HYPERTHERMIA MALIGNANT [None]
  - HYPOTENSION [None]
  - METABOLIC ACIDOSIS [None]
  - MITOCHONDRIAL DNA MUTATION [None]
  - PNEUMONIA [None]
  - PROCEDURAL COMPLICATION [None]
  - PROPOFOL INFUSION SYNDROME [None]
  - RENAL FAILURE ACUTE [None]
  - RHABDOMYOLYSIS [None]
  - SEPSIS [None]
  - SPLENOMEGALY [None]
  - TACHYCARDIA [None]
  - TORSADE DE POINTES [None]
  - URINE ANALYSIS ABNORMAL [None]
  - VEIN WALL HYPERTROPHY [None]
  - VENTRICULAR FIBRILLATION [None]
  - VENTRICULAR TACHYCARDIA [None]
